FAERS Safety Report 18449252 (Version 1)
Quarter: 2020Q4

REPORT INFORMATION
  Report Type: Spontaneous
  Country: NL (occurrence: NL)
  Receive Date: 20201030
  Receipt Date: 20201030
  Transmission Date: 20210114
  Serious: Yes (Other)
  Sender: FDA-Public Use
  Company Number: NL-TEVA-2020-NL-1842816

PATIENT
  Age: 58 Year
  Sex: Female
  Weight: 65 kg

DRUGS (6)
  1. ACETYLSALICYLZUUR TABLET  80MG / BRAND NAME NOT SPECIFIED [Concomitant]
     Active Substance: ASPIRIN
     Dosage: 80 MILLIGRAM DAILY; THERAPY START DATE AND END DATE : ASKU
  2. CALCIUMCARB/COLECALC KAUWTB 1,25G/400IE (500MG CA) / TACAL D3 KAUWTABL [Concomitant]
     Active Substance: CALCIUM CARBONATE\CHOLECALCIFEROL
     Dosage: 1 DOSAGE FORMS DAILY; THERAPY START DATE AND END DATE : ASKU
  3. LETROZOL TABLET OMHULD 2,5MG / BRAND NAME NOT SPECIFIED [Suspect]
     Active Substance: LETROZOLE
     Indication: BREAST CANCER
     Dosage: 2.5 MILLIGRAM DAILY;
     Dates: start: 201903
  4. SIMVASTATINE TABLET FO 10MG / BRAND NAME NOT SPECIFIED [Concomitant]
     Active Substance: SIMVASTATIN
     Dosage: 10 MILLIGRAM DAILY; THERAPY START DATE AND END DATE : ASKU
  5. METOPROLOL TABLET   50MG / BRAND NAME  NOT SPECIFIED [Concomitant]
     Active Substance: LETROZOLE
     Dosage: THERAPY START DATE AND END DATE : ASKU
  6. ESOMEPRAZOL CAPSULE MSR 20MG / BRAND NAME NOT SPECIFIED [Concomitant]
     Active Substance: ESOMEPRAZOLE
     Dosage: 20 MILLIGRAM DAILY; THERAPY START DATE AND END DATE : ASKU

REACTIONS (1)
  - Leukoplakia oral [Not Recovered/Not Resolved]

NARRATIVE: CASE EVENT DATE: 20191104
